FAERS Safety Report 8954636 (Version 2)
Quarter: 2012Q4

REPORT INFORMATION
  Report Type: 
  Country: CA (occurrence: CA)
  Receive Date: 20121210
  Receipt Date: 20121221
  Transmission Date: 20130627
  Serious: Yes (Hospitalization)
  Sender: FDA-Public Use
  Company Number: CA-BRISTOL-MYERS SQUIBB COMPANY-17157652

PATIENT
  Age: 49 Year
  Sex: Female

DRUGS (17)
  1. COUMADIN [Suspect]
     Dosage: interr
restart at 2.5mg daily
  2. CLINDAMYCIN [Interacting]
  3. PROGRAF [Suspect]
     Indication: IMMUNOSUPPRESSION
     Dates: start: 20120125
  4. PROGRAF [Suspect]
     Indication: RENAL TRANSPLANT
     Dates: start: 20120125
  5. AMOXICILLIN [Concomitant]
  6. PREDNISONE [Concomitant]
  7. METOPROLOL [Concomitant]
  8. RAMIPRIL [Concomitant]
  9. NIFEDIPINE XL [Concomitant]
  10. ASPIRIN [Concomitant]
  11. SYNTHROID [Concomitant]
  12. CALCIUM CARBONATE [Concomitant]
  13. SODIUM BICARBONATE [Concomitant]
  14. IBUPROFEN [Concomitant]
  15. LOSEC [Concomitant]
  16. CELEXA [Concomitant]
  17. FUROSEMIDE [Concomitant]

REACTIONS (8)
  - Cardiac failure congestive [Unknown]
  - Mallory-Weiss syndrome [Recovering/Resolving]
  - Haemorrhage [Recovered/Resolved]
  - Renal failure acute [Unknown]
  - Hypovolaemia [Unknown]
  - Urinary tract infection bacterial [Recovered/Resolved]
  - International normalised ratio increased [Recovered/Resolved]
  - Drug interaction [Recovered/Resolved]
